FAERS Safety Report 10577149 (Version 4)
Quarter: 2015Q1

REPORT INFORMATION
  Report Type: Spontaneous
  Country: CA (occurrence: CA)
  Receive Date: 20141111
  Receipt Date: 20150331
  Transmission Date: 20150720
  Serious: Yes (Death, Hospitalization, Other)
  Sender: FDA-Public Use
  Company Number: CA-GILEAD-2013-0089060

PATIENT
  Age: 80 Year
  Sex: Female
  Weight: 53.6 kg

DRUGS (15)
  1. GLICLAZIDE [Concomitant]
     Active Substance: GLICLAZIDE
  2. OXYGEN. [Concomitant]
     Active Substance: OXYGEN
     Dosage: 2L CONTINUOUS
  3. OXYGEN. [Concomitant]
     Active Substance: OXYGEN
  4. AMBRISENTAN [Suspect]
     Active Substance: AMBRISENTAN
     Indication: PULMONARY ARTERIAL HYPERTENSION
     Dosage: 5MG PER DAY
     Route: 048
     Dates: start: 20131122
  5. AMBRISENTAN [Suspect]
     Active Substance: AMBRISENTAN
     Dosage: 10 MG, QD
     Route: 065
     Dates: start: 20150227
  6. SPIRONOLACTONE. [Concomitant]
     Active Substance: SPIRONOLACTONE
  7. PRADAXA [Concomitant]
     Active Substance: DABIGATRAN ETEXILATE MESYLATE
  8. OXYGEN. [Concomitant]
     Active Substance: OXYGEN
  9. OXYGEN. [Concomitant]
     Active Substance: OXYGEN
  10. FUROSEMIDE. [Concomitant]
     Active Substance: FUROSEMIDE
  11. OLMETEC [Concomitant]
     Active Substance: OLMESARTAN MEDOXOMIL
  12. SILDENAFIL. [Concomitant]
     Active Substance: SILDENAFIL
  13. DIGOXIN. [Concomitant]
     Active Substance: DIGOXIN
  14. OXYGEN. [Concomitant]
     Active Substance: OXYGEN
  15. SIMVASTATIN. [Concomitant]
     Active Substance: SIMVASTATIN

REACTIONS (4)
  - Flushing [Not Recovered/Not Resolved]
  - Dyspnoea [Unknown]
  - Pneumonia [Recovered/Resolved]
  - Death [Fatal]

NARRATIVE: CASE EVENT DATE: 20131122
